FAERS Safety Report 11132874 (Version 1)
Quarter: 2015Q2

REPORT INFORMATION
  Report Type: Spontaneous
  Country: US (occurrence: US)
  Receive Date: 20150522
  Receipt Date: 20150522
  Transmission Date: 20150821
  Serious: No
  Sender: FDA-Public Use
  Company Number: US-PFIZER INC-2015169084

PATIENT
  Age: 82 Year
  Sex: Female
  Weight: 67 kg

DRUGS (21)
  1. CARVEDILOL. [Concomitant]
     Active Substance: CARVEDILOL
     Dosage: 3.125 MG, 1X/DAY
  2. B12 INJECTION [Concomitant]
     Dosage: 1000 MG, MONTHLY
  3. LEVOTHYROXINE [Concomitant]
     Active Substance: LEVOTHYROXINE
     Dosage: 150 ?G, 1X/DAY
  4. MAGNESIUM [Concomitant]
     Active Substance: MAGNESIUM
     Dosage: 500 MG, 2X/DAY
  5. SPIRONOLACTONE. [Concomitant]
     Active Substance: SPIRONOLACTONE
     Indication: DIURETIC THERAPY
     Dosage: 25 MG, DAILY
     Route: 048
  6. PANTOPRAZOLE [Concomitant]
     Active Substance: PANTOPRAZOLE SODIUM
     Dosage: 40 MG, DAILY
  7. LYRICA [Suspect]
     Active Substance: PREGABALIN
     Indication: NEURALGIA
     Dosage: 50 MG, SINGLE (ONE WHITE CAPSULE BY MOUTH)
     Route: 048
     Dates: start: 20150516
  8. LYRICA [Suspect]
     Active Substance: PREGABALIN
     Indication: NERVOUSNESS
  9. COLACE [Concomitant]
     Active Substance: DOCUSATE SODIUM
     Indication: FAECES SOFT
     Dosage: UNK
  10. PREMARIN [Concomitant]
     Active Substance: ESTROGENS, CONJUGATED
     Dosage: UNK ^0.9^, DAILY
  11. FISH OIL [Concomitant]
     Active Substance: FISH OIL
     Dosage: 1000 MG, 2X/DAY
  12. SERTRALINE [Concomitant]
     Active Substance: SERTRALINE HYDROCHLORIDE
     Dosage: 25 MG, DAILY
  13. TUMS [Concomitant]
     Active Substance: CALCIUM CARBONATE
     Indication: BLOOD CALCIUM
     Dosage: UNK, DAILY
  14. XARELTO [Concomitant]
     Active Substance: RIVAROXABAN
     Dosage: 15 MG, 1X/DAY
  15. OCUVITE [Concomitant]
     Active Substance: VITAMINS
     Dosage: 2 CAPSULES, DAILY
  16. LASIX [Concomitant]
     Active Substance: FUROSEMIDE
     Dosage: 20 MG, DAILY
  17. LYRICA [Suspect]
     Active Substance: PREGABALIN
     Indication: PAIN
  18. VITAMIN B3 [Concomitant]
     Active Substance: NIACIN
     Dosage: UNK, 1X/DAY
  19. MULTAQ [Concomitant]
     Active Substance: DRONEDARONE
     Dosage: 400 MG, 2X/DAY
  20. LINZESS [Concomitant]
     Active Substance: LINACLOTIDE
     Dosage: 145 MG, UNK
  21. LOSARTAN [Concomitant]
     Active Substance: LOSARTAN
     Dosage: 25 MG, 1X/DAY

REACTIONS (3)
  - Pruritus [Not Recovered/Not Resolved]
  - Confusional state [Unknown]
  - Somnolence [Unknown]
